FAERS Safety Report 10206618 (Version 1)
Quarter: 2014Q2

REPORT INFORMATION
  Report Type: Spontaneous
  Country: US (occurrence: US)
  Receive Date: 20140530
  Receipt Date: 20140530
  Transmission Date: 20141212
  Serious: Yes (Hospitalization)
  Sender: FDA-Public Use
  Company Number: US-GLAXOSMITHKLINE-A1068125A

PATIENT
  Age: 73 Year
  Sex: Female

DRUGS (2)
  1. FLOLAN [Suspect]
     Indication: PULMONARY ARTERIAL HYPERTENSION
     Dosage: 53NGKM CONTINUOUS
     Route: 042
     Dates: start: 19990709
  2. LETAIRIS [Concomitant]

REACTIONS (2)
  - Nasopharyngitis [Unknown]
  - Dehydration [Unknown]
